FAERS Safety Report 7301027-2 (Version None)
Quarter: 2011Q1

REPORT INFORMATION
  Report Type: 
  Country: None (occurrence: None)
  Receive Date: 20110218
  Receipt Date: 20110210
  Transmission Date: 20110831
  Serious: Yes (Hospitalization)
  Sender: FDA-Public Use
  Company Number: FR-SP-2010-00949

PATIENT
  Sex: Male

DRUGS (10)
  1. PERINDOPRIL ERBUMINE [Concomitant]
     Route: 048
  2. NOCTRAN (CLORAZEPATE DIPOTASSIUM) [Concomitant]
     Route: 048
  3. DILTIAZEM HCL [Concomitant]
     Route: 048
  4. INSULINE CHOAY [Concomitant]
     Route: 058
  5. LASIX [Concomitant]
     Route: 048
  6. BECOTIDE (BECLOMETASONE) [Concomitant]
     Dosage: INH.
  7. IMMUCYST [Suspect]
     Indication: BLADDER CANCER
     Route: 043
     Dates: start: 20090301, end: 20090826
  8. FORADIL [Concomitant]
     Dosage: INH.
  9. DIAMICRON (GLICLAZIDE) [Concomitant]
     Route: 048
  10. ATARAX [Concomitant]
     Route: 048

REACTIONS (2)
  - PULMONARY TUBERCULOSIS [None]
  - GENERAL PHYSICAL HEALTH DETERIORATION [None]
